FAERS Safety Report 22524895 (Version 1)
Quarter: 2023Q2

REPORT INFORMATION
  Report Type: Spontaneous
  Country: KR (occurrence: KR)
  Receive Date: 20230606
  Receipt Date: 20230606
  Transmission Date: 20230722
  Serious: Yes (Hospitalization)
  Sender: FDA-Public Use
  Company Number: KR-ORGANON-O2305KOR003120

PATIENT
  Sex: Female
  Weight: 56 kg

DRUGS (12)
  1. COZAAR [Suspect]
     Active Substance: LOSARTAN POTASSIUM
     Indication: Cardiovascular disorder
     Dosage: 50 MILLIGRAM, FILM COATED TABLETS
     Route: 048
     Dates: start: 20180828
  2. FENOFIBRATE [Concomitant]
     Active Substance: FENOFIBRATE
     Indication: Hyperlipidaemia
     Dosage: 160 MILLIGRAM, SUSTAINED-RELEASE FILM-COATED TABLETS
     Route: 048
     Dates: start: 20170728
  3. ROSUVASTATIN CALCIUM [Concomitant]
     Active Substance: ROSUVASTATIN CALCIUM
     Indication: Hyperlipidaemia
     Dosage: 10 MILLIGRAM
     Route: 048
     Dates: start: 20170530
  4. METFORMIN HYDROCHLORIDE [Concomitant]
     Active Substance: METFORMIN HYDROCHLORIDE
     Indication: Diabetes mellitus
     Dosage: 850 MILLIGRAM
     Route: 048
     Dates: start: 20170829
  5. PIOGLITAZONE HYDROCHLORIDE [Concomitant]
     Active Substance: PIOGLITAZONE HYDROCHLORIDE
     Indication: Diabetes mellitus
     Dosage: 30 MILLIGRAM, UNCOATED TABLET
     Route: 048
     Dates: start: 20170530
  6. CIPROFLOXACIN HYDROCHLORIDE [Concomitant]
     Active Substance: CIPROFLOXACIN HYDROCHLORIDE
     Indication: Urinary tract infection
     Dosage: 250 MILLIGRAM
     Route: 048
     Dates: start: 20180827, end: 20180910
  7. AMOXICILLIN\CLAVULANATE POTASSIUM [Concomitant]
     Active Substance: AMOXICILLIN\CLAVULANATE POTASSIUM
     Indication: Urinary tract infection
     Dosage: 375 MILLIGRAM
     Route: 048
     Dates: start: 20180911, end: 20180927
  8. MIRABEGRON [Concomitant]
     Active Substance: MIRABEGRON
     Indication: Urinary tract infection
     Dosage: 50 MILLIGRAM, SUSTAINED-RELEASE FILM-COATED TABLETS
     Route: 048
     Dates: start: 20180928, end: 20181108
  9. SULFAMETHOXAZOLE\TRIMETHOPRIM [Concomitant]
     Active Substance: SULFAMETHOXAZOLE\TRIMETHOPRIM
     Indication: Urinary tract infection
     Dosage: UNK, UNCOATED TABLET
     Route: 048
     Dates: start: 20180928
  10. ASPIRIN [Concomitant]
     Active Substance: ASPIRIN
     Indication: Peripheral arterial occlusive disease
     Dosage: 100 MILLIGRAM, ENTERIC FILM-COATED TABLETS
     Route: 048
     Dates: start: 20161124
  11. CILOSTAZOL [Concomitant]
     Active Substance: CILOSTAZOL
     Indication: Peripheral arterial occlusive disease
     Dosage: 100 MILLIGRAM, UNCOATED TABLET
     Route: 048
     Dates: start: 20170223
  12. BERAPROST SODIUM [Concomitant]
     Active Substance: BERAPROST SODIUM
     Indication: Peripheral arterial occlusive disease
     Dosage: 20 MICROGRAM
     Route: 048
     Dates: start: 20170803

REACTIONS (5)
  - Urinary tract infection [Recovering/Resolving]
  - Urinary incontinence [Recovering/Resolving]
  - Thirst [Recovered/Resolved]
  - Oedema [Recovered/Resolved]
  - Nasopharyngitis [Recovered/Resolved]

NARRATIVE: CASE EVENT DATE: 20180801
